FAERS Safety Report 7518053-0 (Version None)
Quarter: 2011Q2

REPORT INFORMATION
  Report Type: 
  Country: None (occurrence: None)
  Receive Date: 20110531
  Receipt Date: 20110531
  Transmission Date: 20111010
  Serious: Yes (Life-Threatening, Hospitalization)
  Sender: FDA-Public Use
  Company Number: None

PATIENT
  Age: 31 Year
  Sex: Female

DRUGS (1)
  1. OXYCONTIN [Suspect]
     Indication: PAIN
     Dosage: 2 CAPSULES TWICE DAILY PO
     Route: 048
     Dates: start: 20101101, end: 20101231

REACTIONS (2)
  - PRODUCT SOLUBILITY ABNORMAL [None]
  - INTESTINAL OBSTRUCTION [None]
